FAERS Safety Report 6558043-8 (Version None)
Quarter: 2010Q1

REPORT INFORMATION
  Report Type: 
  Country: None (occurrence: None)
  Receive Date: 20100129
  Receipt Date: 20100121
  Transmission Date: 20100710
  Serious: Yes (Life-Threatening, Hospitalization)
  Sender: FDA-Public Use
  Company Number: FR-ROCHE-681185

PATIENT
  Sex: Female

DRUGS (5)
  1. HERCEPTIN [Suspect]
     Indication: BREAST CANCER
     Dosage: 150 MG POWDER FOR DRIP SOLUTION
     Route: 041
     Dates: start: 20060301, end: 20070301
  2. FLUOROURACIL [Suspect]
     Indication: BREAST CANCER
     Dosage: DRUG: FLUOROURACILE
     Route: 041
     Dates: start: 20060101, end: 20060301
  3. EPIRUBICIN [Suspect]
     Indication: BREAST CANCER
     Dosage: DRUG: EPIRUBICINE CHLORHYDRATE
     Route: 041
     Dates: start: 20060101, end: 20060301
  4. ENDOXAN [Suspect]
     Indication: BREAST CANCER
     Dosage: 1000 MG POWDER FOR INJECTABLE SOLUTION.
     Route: 042
     Dates: start: 20060101, end: 20060301
  5. NOLVADEX [Suspect]
     Indication: BREAST CANCER
     Dosage: FORM: COATED TABLET.
     Route: 048
     Dates: start: 20060301, end: 20080101

REACTIONS (1)
  - ACUTE MYELOMONOCYTIC LEUKAEMIA [None]
